FAERS Safety Report 9897595 (Version 3)
Quarter: 2014Q3

REPORT INFORMATION
  Report Type: Report from Study
  Country: DE (occurrence: DE)
  Receive Date: 20140214
  Receipt Date: 20140926
  Transmission Date: 20150326
  Serious: Yes (Death)
  Sender: FDA-Public Use
  Company Number: DE-ASTELLAS-2014US001478

PATIENT
  Age: 76 Year
  Sex: Male

DRUGS (1)
  1. ERLOTINIB [Suspect]
     Active Substance: ERLOTINIB
     Indication: BRONCHIOLOALVEOLAR CARCINOMA
     Route: 065

REACTIONS (1)
  - Pneumothorax spontaneous [Fatal]

NARRATIVE: CASE EVENT DATE: 20110927
